FAERS Safety Report 15929292 (Version 1)
Quarter: 2019Q1

REPORT INFORMATION
  Report Type: Spontaneous
  Country: US (occurrence: US)
  Receive Date: 20190206
  Receipt Date: 20190206
  Transmission Date: 20190417
  Serious: Yes (Other)
  Sender: FDA-Public Use
  Company Number: US-ACTELION-A-US2019-185652

PATIENT
  Age: 55 Year
  Sex: Female

DRUGS (21)
  1. SILDENAFIL. [Concomitant]
     Active Substance: SILDENAFIL
  2. SINGULAIR [Concomitant]
     Active Substance: MONTELUKAST SODIUM
  3. DILAUDID [Concomitant]
     Active Substance: HYDROMORPHONE HYDROCHLORIDE
  4. SEROQUEL [Concomitant]
     Active Substance: QUETIAPINE FUMARATE
  5. ADVAIR HFA [Concomitant]
     Active Substance: FLUTICASONE PROPIONATE\SALMETEROL XINAFOATE
  6. BENZONATATE. [Concomitant]
     Active Substance: BENZONATATE
  7. PERCOCET [Concomitant]
     Active Substance: ACETAMINOPHEN\OXYCODONE HYDROCHLORIDE
  8. UPTRAVI [Suspect]
     Active Substance: SELEXIPAG
     Indication: PRODUCT USED FOR UNKNOWN INDICATION
     Dosage: UNK
     Route: 048
  9. FLONASE [Concomitant]
     Active Substance: FLUTICASONE PROPIONATE
  10. ONDANSETRON [Concomitant]
     Active Substance: ONDANSETRON
  11. SPIRIVA [Concomitant]
     Active Substance: TIOTROPIUM BROMIDE MONOHYDRATE
  12. AMBRISENTAN [Suspect]
     Active Substance: AMBRISENTAN
     Indication: PULMONARY ARTERIAL HYPERTENSION
     Dosage: 10 MG, QD
     Route: 065
     Dates: start: 20171003
  13. ADCIRCA [Concomitant]
     Active Substance: TADALAFIL
  14. AMOXICILLIN. [Concomitant]
     Active Substance: AMOXICILLIN
  15. PANTOPRAZOLE [Concomitant]
     Active Substance: PANTOPRAZOLE
  16. PREDNISONE. [Concomitant]
     Active Substance: PREDNISONE
  17. ASPIRIN (E.C.) [Concomitant]
     Active Substance: ASPIRIN
  18. DILTIAZEM. [Concomitant]
     Active Substance: DILTIAZEM
  19. GABAPENTIN. [Concomitant]
     Active Substance: GABAPENTIN
  20. CLARITIN-D NOS [Concomitant]
     Active Substance: LORATADINE\PSEUDOEPHEDRINE SULFATE
  21. PHENYTOIN. [Concomitant]
     Active Substance: PHENYTOIN

REACTIONS (6)
  - Thyroid disorder [Not Recovered/Not Resolved]
  - Amnesia [Not Recovered/Not Resolved]
  - Autoscopy [Not Recovered/Not Resolved]
  - Hepatomegaly [Not Recovered/Not Resolved]
  - Seizure [Not Recovered/Not Resolved]
  - Nephrolithiasis [Not Recovered/Not Resolved]
